FAERS Safety Report 14774018 (Version 2)
Quarter: 2018Q2

REPORT INFORMATION
  Report Type: Report from Study
  Country: AT (occurrence: AT)
  Receive Date: 20180418
  Receipt Date: 20180419
  Transmission Date: 20180711
  Serious: Yes (Hospitalization)
  Sender: FDA-Public Use
  Company Number: AT-PFIZER INC-2018151183

PATIENT
  Age: 36 Year
  Sex: Female

DRUGS (32)
  1. EPIRUBICIN HCL [Suspect]
     Active Substance: EPIRUBICIN HYDROCHLORIDE
     Indication: BREAST CANCER
     Dosage: DATE OF MOST RECENT DOSE: 05/OCT/2016
     Route: 042
     Dates: start: 20161005, end: 20161005
  2. CYCLOPHOSPHAMIDE. [Suspect]
     Active Substance: CYCLOPHOSPHAMIDE
     Indication: BREAST CANCER
     Dosage: 500 MG
     Route: 042
     Dates: start: 20161005, end: 20161005
  3. DUROGESIC [Concomitant]
     Active Substance: FENTANYL
     Dosage: UNK
     Dates: start: 20170615
  4. ZOFRAN [Concomitant]
     Active Substance: ONDANSETRON HYDROCHLORIDE
     Dosage: UNK
     Dates: start: 20161123, end: 20170204
  5. CEOLAT [Concomitant]
     Dosage: UNK
     Dates: start: 20161112, end: 20170215
  6. XGEVA [Concomitant]
     Active Substance: DENOSUMAB
     Dosage: UNK
     Dates: start: 20161201
  7. GLADEM [Concomitant]
     Active Substance: SERTRALINE HYDROCHLORIDE
     Dosage: UNK
     Dates: start: 20171015
  8. TRASTUZUMAB. [Suspect]
     Active Substance: TRASTUZUMAB
     Indication: BREAST CANCER
     Dosage: 8 MG, EVERY 3 WEEKS
     Route: 042
     Dates: start: 20161020, end: 20161020
  9. RAMIPRIL. [Concomitant]
     Active Substance: RAMIPRIL
     Dosage: UNK
     Dates: start: 20161222, end: 20170226
  10. CONCOR COR [Concomitant]
     Active Substance: BISOPROLOL FUMARATE
     Dosage: UNK
     Dates: start: 20161117, end: 20170226
  11. ELOMEL [Concomitant]
     Indication: FEBRILE NEUTROPENIA
     Dosage: UNK
     Dates: start: 20161110
  12. ELOMEL [Concomitant]
     Dosage: UNK
     Dates: start: 20161208, end: 20161212
  13. FORTECORTIN /00016001/ [Concomitant]
     Active Substance: DEXAMETHASONE
     Dosage: UNK
     Dates: start: 20161202, end: 20161203
  14. XARELTO [Concomitant]
     Active Substance: RIVAROXABAN
     Dosage: UNK
     Dates: start: 20161026, end: 20161215
  15. HALCION [Concomitant]
     Active Substance: TRIAZOLAM
     Dosage: UNK
     Dates: start: 20160615, end: 20170215
  16. XANOR [Concomitant]
     Active Substance: ALPRAZOLAM
     Dosage: UNK
     Dates: start: 20161117
  17. LASIX [Concomitant]
     Active Substance: FUROSEMIDE
     Dosage: UNK
     Dates: start: 20161112, end: 20161114
  18. SUCRALAN [Concomitant]
     Dosage: UNK
     Dates: start: 20161215
  19. PANTOLOC /01263201/ [Concomitant]
     Active Substance: PANTOPRAZOLE SODIUM
     Dosage: UNK
     Dates: start: 20161031, end: 20161123
  20. DOCETAXEL. [Suspect]
     Active Substance: DOCETAXEL
     Indication: BREAST CANCER
     Dosage: 500 MG, DATE OF MOST RECENT DOSE: 11/NOV/2016
     Route: 042
     Dates: start: 20161004, end: 20161005
  21. RAMIPRIL. [Concomitant]
     Active Substance: RAMIPRIL
     Dosage: UNK
     Dates: start: 20161112, end: 20161221
  22. ARANESP [Concomitant]
     Active Substance: DARBEPOETIN ALFA
     Dosage: UNK
     Dates: start: 20161201, end: 20170115
  23. PERTUZUMAB. [Suspect]
     Active Substance: PERTUZUMAB
     Indication: BREAST CANCER
     Dosage: 840 MG, EVERY 3 WEEKS
     Route: 042
     Dates: start: 20161020, end: 20161020
  24. LASIX [Concomitant]
     Active Substance: FUROSEMIDE
     Dosage: UNK
     Dates: start: 20161114, end: 20161115
  25. VITAMINS WITH MINERALS [Concomitant]
     Active Substance: MINERALS\VITAMINS
     Dosage: UNK
     Dates: start: 20161112
  26. HALDOL [Concomitant]
     Active Substance: HALOPERIDOL
     Dosage: UNK
     Dates: start: 20170215
  27. MOVICOL [Concomitant]
     Active Substance: POLYETHYLENE GLYCOL 3350\POTASSIUM CHLORIDE\SODIUM BICARBONATE\SODIUM CHLORIDE
     Dosage: UNK
     Dates: start: 20170615
  28. OPTIFIBRE [Concomitant]
     Dosage: UNK
     Dates: start: 20161102, end: 20161115
  29. DOCETAXEL. [Suspect]
     Active Substance: DOCETAXEL
     Dosage: 75 MG, EVERY 3 WEEKS , DATE OF MOST RECENT DOSE: 11/NOV/2016, 01/DEC/2016
     Route: 042
     Dates: start: 20161020
  30. HYDAL [Concomitant]
     Active Substance: HYDROMORPHONE HYDROCHLORIDE
     Dosage: UNK
     Dates: start: 20170615
  31. PASPERTIN /00041902/ [Concomitant]
     Active Substance: METOCLOPRAMIDE HYDROCHLORIDE
     Dosage: UNK
     Dates: start: 20161113
  32. KCL-RETARD [Concomitant]
     Active Substance: POTASSIUM CHLORIDE
     Dosage: UNK
     Dates: start: 20161117, end: 20170215

REACTIONS (3)
  - Pharyngitis [Recovered/Resolved]
  - Febrile neutropenia [Recovered/Resolved]
  - Left ventricular dysfunction [Recovered/Resolved]

NARRATIVE: CASE EVENT DATE: 20161208
